FAERS Safety Report 13402950 (Version 1)
Quarter: 2017Q2

REPORT INFORMATION
  Report Type: Spontaneous
  Country: US (occurrence: US)
  Receive Date: 20170404
  Receipt Date: 20170404
  Transmission Date: 20170830
  Serious: No
  Sender: FDA-Public Use
  Company Number: US-ROCHE-1811385

PATIENT
  Age: 52 Year
  Sex: Female

DRUGS (1)
  1. BEVACIZUMAB [Suspect]
     Active Substance: BEVACIZUMAB
     Indication: EYE HAEMANGIOMA
     Dosage: DILUTED IN 0.8 ML OF NORMAL SALINE (25 MG/ML)
     Route: 026

REACTIONS (2)
  - Scar [Unknown]
  - Off label use [Unknown]
